FAERS Safety Report 15882065 (Version 1)
Quarter: 2019Q1

REPORT INFORMATION
  Report Type: Spontaneous
  Country: CA (occurrence: CA)
  Receive Date: 20190128
  Receipt Date: 20190128
  Transmission Date: 20190417
  Serious: Yes (Death)
  Sender: FDA-Public Use
  Company Number: CA-ACTELION-A-NJ2019-185173

PATIENT
  Age: 44 Year
  Sex: Male

DRUGS (26)
  1. ADVAIR HFA [Concomitant]
     Active Substance: FLUTICASONE PROPIONATE\SALMETEROL XINAFOATE
  2. HUMULIN N [Concomitant]
     Active Substance: INSULIN HUMAN
  3. GABAPENTIN. [Concomitant]
     Active Substance: GABAPENTIN
  4. TECTA [Concomitant]
     Active Substance: PANTOPRAZOLE MAGNESIUM
  5. REPLAVITE [Concomitant]
  6. EPREX [Concomitant]
     Active Substance: ERYTHROPOIETIN
  7. ATROVENT [Concomitant]
     Active Substance: IPRATROPIUM BROMIDE
  8. PLENDIL [Concomitant]
     Active Substance: FELODIPINE
  9. BISOPROLOL [Concomitant]
     Active Substance: BISOPROLOL
  10. IRON [Concomitant]
     Active Substance: IRON
  11. CLOPIDOGREL [Concomitant]
     Active Substance: CLOPIDOGREL BISULFATE
  12. FUROSEMIDE. [Concomitant]
     Active Substance: FUROSEMIDE
  13. TRACLEER [Suspect]
     Active Substance: BOSENTAN
     Indication: PULMONARY ARTERIAL HYPERTENSION
     Dosage: 125 MG, BID
     Route: 048
     Dates: start: 20151008
  14. RENAGEL [Concomitant]
     Active Substance: SEVELAMER HYDROCHLORIDE
  15. LORAZEPAM. [Concomitant]
     Active Substance: LORAZEPAM
  16. ROCALTROL [Concomitant]
     Active Substance: CALCITRIOL
  17. SERTRALINE [Concomitant]
     Active Substance: SERTRALINE HYDROCHLORIDE
  18. WARFARIN [Concomitant]
     Active Substance: WARFARIN
  19. CEPHALEXIN. [Concomitant]
     Active Substance: CEPHALEXIN
  20. OXYCODONE [Concomitant]
     Active Substance: OXYCODONE
  21. MORPHINE SULFATE. [Concomitant]
     Active Substance: MORPHINE SULFATE
  22. REVATIO [Concomitant]
     Active Substance: SILDENAFIL CITRATE
  23. HUMALOG [Concomitant]
     Active Substance: INSULIN LISPRO
  24. PREDNISONE. [Concomitant]
     Active Substance: PREDNISONE
  25. METRONIDAZOLE. [Concomitant]
     Active Substance: METRONIDAZOLE
  26. DILANTIN [Concomitant]
     Active Substance: PHENYTOIN

REACTIONS (1)
  - Death [Fatal]

NARRATIVE: CASE EVENT DATE: 20190105
